FAERS Safety Report 16542311 (Version 1)
Quarter: 2019Q3

REPORT INFORMATION
  Report Type: Report from Study
  Country: EG (occurrence: EG)
  Receive Date: 20190708
  Receipt Date: 20190708
  Transmission Date: 20191004
  Serious: Yes (Death, Hospitalization, Other)
  Sender: FDA-Public Use
  Company Number: PHHY2019EG155242

PATIENT
  Age: 63 Year
  Sex: Female

DRUGS (6)
  1. ELTROXIN [Concomitant]
     Active Substance: LEVOTHYROXINE
     Indication: PRODUCT USED FOR UNKNOWN INDICATION
     Dosage: 75 MG, QD (50 MG + 25 MG TAB FROM EACH ONE /DAY)
  2. KISQALI [Suspect]
     Active Substance: RIBOCICLIB
     Indication: METASTASES TO LYMPH NODES
  3. FASLODEX [Concomitant]
     Active Substance: FULVESTRANT
     Indication: PRODUCT USED FOR UNKNOWN INDICATION
     Dosage: 3 INJECTION FIRST MONTH THEN 1 INJECTION/MONTH
     Route: 065
  4. KISQALI [Suspect]
     Active Substance: RIBOCICLIB
     Indication: BREAST CANCER
     Dosage: 600 MG, QD
     Route: 048
     Dates: start: 20190224, end: 201906
  5. KISQALI [Suspect]
     Active Substance: RIBOCICLIB
     Indication: METASTASES TO LIVER
  6. KISQALI [Suspect]
     Active Substance: RIBOCICLIB
     Indication: METASTASES TO LUNG

REACTIONS (5)
  - Hypotension [Not Recovered/Not Resolved]
  - Metastases to biliary tract [Not Recovered/Not Resolved]
  - Abdominal distension [Not Recovered/Not Resolved]
  - Hepatic failure [Fatal]
  - Jaundice [Not Recovered/Not Resolved]

NARRATIVE: CASE EVENT DATE: 201906
